FAERS Safety Report 6726862-0 (Version None)
Quarter: 2010Q2

REPORT INFORMATION
  Report Type: 
  Country: None (occurrence: None)
  Receive Date: 20100517
  Receipt Date: 20100506
  Transmission Date: 20101027
  Serious: Yes (Other)
  Sender: FDA-Public Use
  Company Number: US-BIOGENIDEC-2010BI015171

PATIENT
  Age: 31 Year
  Sex: Male

DRUGS (1)
  1. TYSABRI [Suspect]
     Indication: MULTIPLE SCLEROSIS
     Route: 042
     Dates: start: 20091209

REACTIONS (6)
  - FALL [None]
  - GAIT DISTURBANCE [None]
  - MUSCLE SPASTICITY [None]
  - MYOCARDIAL INFARCTION [None]
  - RASH GENERALISED [None]
  - URTICARIA [None]
